FAERS Safety Report 18220926 (Version 1)
Quarter: 2020Q3

REPORT INFORMATION
  Report Type: Spontaneous
  Country: CH (occurrence: CH)
  Receive Date: 20200902
  Receipt Date: 20200902
  Transmission Date: 20201103
  Serious: Yes (Hospitalization)
  Sender: FDA-Public Use
  Company Number: CH-ROCHE-2665843

PATIENT
  Age: 81 Year
  Sex: Female

DRUGS (7)
  1. LASIX [Concomitant]
     Active Substance: FUROSEMIDE
     Dates: start: 2020
  2. APROVEL [Concomitant]
     Active Substance: IRBESARTAN
  3. TORASEMIDE [Concomitant]
     Active Substance: TORSEMIDE
     Dates: start: 2020, end: 2020
  4. CALCIMAGON D3 [Concomitant]
     Active Substance: CALCIUM\CHOLECALCIFEROL
  5. KADCYLA [Suspect]
     Active Substance: ADO-TRASTUZUMAB EMTANSINE
     Indication: PRODUCT USED FOR UNKNOWN INDICATION
     Route: 042
     Dates: start: 20200306, end: 20200529
  6. ALDACTONE [Concomitant]
     Active Substance: SPIRONOLACTONE
     Dates: start: 2020
  7. BELOC ZOK [Concomitant]
     Active Substance: METOPROLOL SUCCINATE

REACTIONS (1)
  - Ascites [Not Recovered/Not Resolved]

NARRATIVE: CASE EVENT DATE: 20200417
